FAERS Safety Report 4608073-8 (Version None)
Quarter: 2005Q1

REPORT INFORMATION
  Report Type: 
  Country: None (occurrence: None)
  Receive Date: 20050314
  Receipt Date: 20050308
  Transmission Date: 20050727
  Serious: Yes (Hospitalization)
  Sender: FDA-Public Use
  Company Number: US-MERCK-0503USA01158

PATIENT
  Age: 91 Year
  Sex: Male

DRUGS (6)
  1. ZETIA [Suspect]
     Indication: HYPERCHOLESTEROLAEMIA
     Route: 048
     Dates: start: 20050101
  2. LIPITOR [Concomitant]
     Route: 065
  3. INSULIN [Concomitant]
     Route: 065
  4. AMARYL [Concomitant]
     Route: 065
  5. NORVASC [Concomitant]
     Route: 065
  6. DIOVAN [Concomitant]
     Route: 065

REACTIONS (1)
  - RENAL PAIN [None]
